FAERS Safety Report 8884811 (Version 3)
Quarter: 2013Q1

REPORT INFORMATION
  Report Type: Spontaneous
  Country: US (occurrence: US)
  Receive Date: 20121105
  Receipt Date: 20130107
  Transmission Date: 20140127
  Serious: Yes (Other)
  Sender: FDA-Public Use
  Company Number: US-AMGEN-USASP2012068744

PATIENT
  Age: 62 Year
  Sex: Female
  Weight: 68.03 kg

DRUGS (7)
  1. ENBREL [Suspect]
     Indication: RHEUMATOID ARTHRITIS
     Dosage: UNK
  2. LEVOTHYROXINE [Concomitant]
     Indication: HYPOTHYROIDISM
     Dosage: UNK
  3. REMICADE [Concomitant]
     Indication: RHEUMATOID ARTHRITIS
     Dosage: EVERY SIX WEEKS
     Route: 042
  4. NASONEX [Concomitant]
     Dosage: UNK
  5. FLUTICASONE                        /00972202/ [Concomitant]
     Dosage: UNK
  6. DICLOFENAC                         /00372302/ [Concomitant]
     Indication: OSTEOARTHRITIS
     Dosage: 50 MG, BID
  7. LYRICA [Concomitant]
     Indication: NEURALGIA
     Dosage: 50 MG X 90

REACTIONS (3)
  - Ankle operation [Unknown]
  - Insomnia [Unknown]
  - Neuralgia [Not Recovered/Not Resolved]
